FAERS Safety Report 17830742 (Version 1)
Quarter: 2020Q2

REPORT INFORMATION
  Report Type: Report from Study
  Country: US (occurrence: US)
  Receive Date: 20200527
  Receipt Date: 20200527
  Transmission Date: 20200714
  Serious: Yes (Hospitalization)
  Sender: FDA-Public Use
  Company Number: US-BAXTER-2020BAX010837

PATIENT
  Sex: Male
  Weight: 85.6 kg

DRUGS (11)
  1. INOTUZUMAB OZOGAMICIN [Suspect]
     Active Substance: INOTUZUMAB OZOGAMICIN
     Indication: B PRECURSOR TYPE ACUTE LEUKAEMIA
     Dosage: COURSE 1 TO 4, TOTAL DOSE ADMINISTERED IN 4TH COURSE: 6 MG
     Route: 065
     Dates: start: 20190621, end: 20190802
  2. DOXIL [Suspect]
     Active Substance: DOXORUBICIN HYDROCHLORIDE
     Indication: B PRECURSOR TYPE ACUTE LEUKAEMIA
     Dosage: COURSE 1 TO 4, TOTAL DOSE ADMINISTERED IN 4TH COURSE: 150 MG
     Route: 065
     Dates: start: 20200228, end: 20200313
  3. CYCLOPHOSPHAMIDE FOR INJECTION, USP [Suspect]
     Active Substance: CYCLOPHOSPHAMIDE
     Indication: B PRECURSOR TYPE ACUTE LEUKAEMIA
     Dosage: COURSE 1 TO 4, TOTAL DOSE ADMINISTERED IN 4TH COURSE: 1940 MG
     Route: 065
     Dates: start: 20190816, end: 20200327
  4. MERCAPTOPURINE. [Suspect]
     Active Substance: MERCAPTOPURINE
     Indication: B PRECURSOR TYPE ACUTE LEUKAEMIA
     Dosage: COURSE 1 TO 4, TOTAL DOSE ADMINISTERED IN 4TH COURSE: 0 MG
     Route: 065
     Dates: start: 20190816, end: 20191114
  5. ONCASPAR [Suspect]
     Active Substance: PEGASPARGASE
     Indication: B PRECURSOR TYPE ACUTE LEUKAEMIA
     Dosage: COURSE 1 TO 4, TOTAL DOSE ADMINISTERED IN 4TH COURSE: 7500 MG
     Route: 065
     Dates: start: 20190521, end: 20200410
  6. DAUNORUBICIN [Suspect]
     Active Substance: DAUNORUBICIN
     Indication: B PRECURSOR TYPE ACUTE LEUKAEMIA
     Dosage: COURSE 1 TO 4, TOTAL DOSE ADMINISTERED IN 4TH COURSE: 0 MG
     Route: 065
     Dates: start: 20190518, end: 20190608
  7. THIOGUANINE [Suspect]
     Active Substance: THIOGUANINE
     Indication: B PRECURSOR TYPE ACUTE LEUKAEMIA
     Dosage: COURSE 1 TO 4, TOTAL DOSE ADMINISTERED IN 4TH COURSE: 1680 MG
     Route: 065
     Dates: start: 20200327, end: 20200410
  8. CYTARABINE. [Suspect]
     Active Substance: CYTARABINE
     Indication: B PRECURSOR TYPE ACUTE LEUKAEMIA
     Dosage: COURSE 1 TO 4, TOTAL DOSE ADMINISTERED IN 4TH COURSE: 1200 MG
     Route: 065
     Dates: start: 20190816, end: 20200406
  9. METHOTREXATE SODIUM. [Suspect]
     Active Substance: METHOTREXATE SODIUM
     Indication: B PRECURSOR TYPE ACUTE LEUKAEMIA
     Dosage: COURSE 1 TO 4, TOTAL DOSE ADMINISTERED IN 4TH COURSE: 45 MG
     Route: 065
     Dates: start: 20190524, end: 20200403
  10. VINCRISTINE SULFATE. [Suspect]
     Active Substance: VINCRISTINE SULFATE
     Indication: B PRECURSOR TYPE ACUTE LEUKAEMIA
     Dosage: COURSE 1 TO 4, TOTAL DOSE ADMINISTERED IN 4TH COURSE: 6 MG
     Route: 065
     Dates: start: 20190518, end: 20200410
  11. DEXAMETHASONE. [Suspect]
     Active Substance: DEXAMETHASONE
     Indication: B PRECURSOR TYPE ACUTE LEUKAEMIA
     Dosage: COURSE 1 TO 4, TOTAL DOSE ADMINISTERED IN 4TH COURSE: 292 MG
     Route: 065
     Dates: start: 20190518, end: 20200327

REACTIONS (1)
  - Febrile neutropenia [Not Recovered/Not Resolved]

NARRATIVE: CASE EVENT DATE: 20200413
